FAERS Safety Report 18997415 (Version 2)
Quarter: 2021Q1

REPORT INFORMATION
  Report Type: Spontaneous
  Country: BR (occurrence: BR)
  Receive Date: 20210311
  Receipt Date: 20210316
  Transmission Date: 20210420
  Serious: Yes (Death)
  Sender: FDA-Public Use
  Company Number: BR-GUERBET-BR-20210037

PATIENT
  Age: 70 Year
  Sex: Female
  Weight: 60 kg

DRUGS (2)
  1. DOTAREM [Suspect]
     Active Substance: GADOTERATE MEGLUMINE
     Route: 065
  2. DOTAREM [Suspect]
     Active Substance: GADOTERATE MEGLUMINE
     Indication: MAGNETIC RESONANCE IMAGING
     Dates: start: 20210301, end: 20210301

REACTIONS (6)
  - Tremor [Fatal]
  - Cyanosis [Fatal]
  - Depressed level of consciousness [Fatal]
  - Pulse absent [Fatal]
  - Anal incontinence [Fatal]
  - Vomiting [Fatal]

NARRATIVE: CASE EVENT DATE: 20210301
